FAERS Safety Report 10821683 (Version 1)
Quarter: 2015Q1

REPORT INFORMATION
  Report Type: Spontaneous
  Country: US (occurrence: None)
  Receive Date: 20150213
  Receipt Date: 20150213
  Transmission Date: 20150721
  Serious: Yes (Other)
  Sender: FDA-Public Use
  Company Number: ADR-2015-00299

PATIENT
  Age: 27 Year
  Sex: Male

DRUGS (1)
  1. BACLOFEN INTRATHECAL 2000MCG/ML [Suspect]
     Active Substance: BACLOFEN
     Indication: MUSCLE SPASTICITY

REACTIONS (16)
  - Dystonia [None]
  - Injection site pain [None]
  - Implant site pain [None]
  - Musculoskeletal disorder [None]
  - Middle insomnia [None]
  - Glaucoma [None]
  - Encephalopathy [None]
  - Inflammation [None]
  - Condition aggravated [None]
  - Muscle contractions involuntary [None]
  - Speech disorder [None]
  - Movement disorder [None]
  - Tendon pain [None]
  - Torticollis [None]
  - Muscle tightness [None]
  - Groin pain [None]

NARRATIVE: CASE EVENT DATE: 20150105
